FAERS Safety Report 7755754-3 (Version None)
Quarter: 2011Q3

REPORT INFORMATION
  Report Type: 
  Country: None (occurrence: None)
  Receive Date: 20110916
  Receipt Date: 20110914
  Transmission Date: 20111222
  Serious: Yes (Death)
  Sender: FDA-Public Use
  Company Number: PHHY2011CA81988

PATIENT
  Sex: Female

DRUGS (1)
  1. SANDOSTATIN LAR [Suspect]
     Indication: GASTROOESOPHAGEAL CANCER
     Dosage: 20 MG, EVERY FOUR WEEKS
     Route: 030
     Dates: start: 20110601, end: 20110627

REACTIONS (1)
  - DEATH [None]
